FAERS Safety Report 8426401-2 (Version None)
Quarter: 2012Q2

REPORT INFORMATION
  Report Type: 
  Country: None (occurrence: None)
  Receive Date: 20120510
  Receipt Date: 20120430
  Transmission Date: 20120825
  Serious: Yes (Other)
  Sender: FDA-Public Use
  Company Number: 0228137

PATIENT
  Sex: Male

DRUGS (1)
  1. TACHOSIL [Suspect]
     Dates: start: 20120430, end: 20120430

REACTIONS (2)
  - PRODUCT ADHESION ISSUE [None]
  - HAEMORRHAGE [None]
